FAERS Safety Report 7536611-4 (Version None)
Quarter: 2011Q2

REPORT INFORMATION
  Report Type: 
  Country: None (occurrence: None)
  Receive Date: 20110609
  Receipt Date: 20110601
  Transmission Date: 20111010
  Serious: Yes (Other)
  Sender: FDA-Public Use
  Company Number: NO-PURDUE-GBR-2011-0008302

PATIENT
  Sex: Female

DRUGS (3)
  1. OXYCODONE HCL [Suspect]
     Indication: CANCER PAIN
     Dosage: 5 MG, UNK
     Route: 048
     Dates: start: 20110411, end: 20110509
  2. OXYNORM 5 MG KAPSLER, HARDE [Concomitant]
     Indication: CANCER PAIN
     Dosage: 5 MG, UNK
     Route: 048
     Dates: start: 20110410, end: 20110509
  3. NEXIUM [Concomitant]
     Dosage: 40 MG, UNK
     Route: 048
     Dates: start: 20110401

REACTIONS (3)
  - JAUNDICE [None]
  - NAUSEA [None]
  - HEPATIC ENZYME INCREASED [None]
